FAERS Safety Report 25622453 (Version 2)
Quarter: 2025Q3

REPORT INFORMATION
  Report Type: Report from Study
  Country: TW (occurrence: TW)
  Receive Date: 20250730
  Receipt Date: 20250808
  Transmission Date: 20251021
  Serious: Yes (Hospitalization, Other)
  Sender: TAKEDA
  Company Number: TW-TAKEDA-2025TUS067706

PATIENT
  Age: 61 Year
  Sex: Male

DRUGS (1)
  1. VEDOLIZUMAB [Suspect]
     Active Substance: VEDOLIZUMAB
     Indication: Colitis ulcerative

REACTIONS (6)
  - Duodenal ulcer [Unknown]
  - Impaired gastric emptying [Unknown]
  - Intestinal obstruction [Recovered/Resolved]
  - Oesophagitis [Unknown]
  - Gastrooesophageal reflux disease [Unknown]
  - Duodenal bulb deformity [Unknown]

NARRATIVE: CASE EVENT DATE: 20250727
